FAERS Safety Report 19042031 (Version 1)
Quarter: 2021Q1

REPORT INFORMATION
  Report Type: Report from Study
  Country: CL (occurrence: CL)
  Receive Date: 20210323
  Receipt Date: 20210323
  Transmission Date: 20210420
  Serious: Yes (Other)
  Sender: FDA-Public Use
  Company Number: NVSC2021CL065212

PATIENT
  Age: 11 Year
  Sex: Female
  Weight: 39 kg

DRUGS (1)
  1. OMNITROPE [Suspect]
     Active Substance: SOMATROPIN
     Indication: BODY HEIGHT ABNORMAL
     Dosage: UNK UNK, QD (10MG/1.5ML?2.0MG)
     Route: 058
     Dates: start: 20210313

REACTIONS (2)
  - Tinnitus [Unknown]
  - Syncope [Unknown]

NARRATIVE: CASE EVENT DATE: 20210315
